FAERS Safety Report 4410809-6 (Version None)
Quarter: 2004Q3

REPORT INFORMATION
  Report Type: 
  Country: None (occurrence: None)
  Receive Date: 20040728
  Receipt Date: 20040728
  Transmission Date: 20050211
  Serious: Yes (Other)
  Sender: FDA-Public Use
  Company Number: None

PATIENT
  Age: 47 Year
  Weight: 103.4201 kg

DRUGS (1)
  1. NEXIUM [Suspect]
     Indication: GASTROOESOPHAGEAL REFLUX DISEASE
     Dosage: 20 MG DAILY ORAL
     Route: 048
     Dates: start: 20040720, end: 20040724

REACTIONS (3)
  - EYE SWELLING [None]
  - SWELLING FACE [None]
  - URTICARIA [None]
